FAERS Safety Report 5799478-0 (Version None)
Quarter: 2008Q3

REPORT INFORMATION
  Report Type: 
  Country: None (occurrence: None)
  Receive Date: 20080701
  Receipt Date: 20080701
  Transmission Date: 20090109
  Serious: Yes (Hospitalization)
  Sender: FDA-Public Use
  Company Number: None

PATIENT
  Sex: Female
  Weight: 121 kg

DRUGS (11)
  1. CYTARABINE [Suspect]
     Dosage: 70 MG
  2. DAUNORUBICIN HCL [Suspect]
     Dosage: 200 MG
  3. DEXAMETHASONE [Suspect]
     Dosage: 280 MG
  4. METHOTREXATE [Suspect]
     Dosage: 15 MG
  5. PEG-L ASPARAGINASE (K-H) [Suspect]
     Dosage: 4700 UNIT
  6. VINCRISTINE SULFATE [Suspect]
     Dosage: 8 MG
  7. ACETAMINOPHEN [Concomitant]
  8. CEFEPIME [Concomitant]
  9. COTRIMOXAZOLE [Concomitant]
  10. MEROPENEM [Concomitant]
  11. TOBRAMYCIN [Concomitant]

REACTIONS (17)
  - BRAIN OEDEMA [None]
  - CARDIOPULMONARY FAILURE [None]
  - CONDITION AGGRAVATED [None]
  - FUNGAL INFECTION [None]
  - HEPATIC FUNCTION ABNORMAL [None]
  - HEPATIC STEATOSIS [None]
  - LUNG CONSOLIDATION [None]
  - MALAISE [None]
  - METABOLIC ACIDOSIS [None]
  - MUCOSAL HAEMORRHAGE [None]
  - OESOPHAGEAL CANDIDIASIS [None]
  - PULMONARY INFARCTION [None]
  - RENAL FAILURE ACUTE [None]
  - RENAL INFARCT [None]
  - RENAL TUBULAR NECROSIS [None]
  - REYE'S SYNDROME [None]
  - VOMITING [None]
